FAERS Safety Report 21040377 (Version 1)
Quarter: 2022Q3

REPORT INFORMATION
  Report Type: Spontaneous
  Country: US (occurrence: US)
  Receive Date: 20220704
  Receipt Date: 20220704
  Transmission Date: 20221026
  Serious: Yes (Other)
  Sender: FDA-Public Use
  Company Number: US-BRISTOL-MYERS SQUIBB COMPANY-2022-065596

PATIENT
  Age: 86 Year
  Sex: Male
  Weight: 72.3 kg

DRUGS (11)
  1. REVLIMID [Suspect]
     Active Substance: LENALIDOMIDE
     Indication: Myelodysplastic syndrome
     Route: 048
     Dates: start: 20210831
  2. SINGULAIR [Concomitant]
     Active Substance: MONTELUKAST SODIUM
  3. FARXIGA [Concomitant]
     Active Substance: DAPAGLIFLOZIN PROPANEDIOL
  4. GABAPENTIN [Concomitant]
     Active Substance: GABAPENTIN
  5. WARFARIN [Concomitant]
     Active Substance: WARFARIN
  6. CARVEDILOL [Concomitant]
     Active Substance: CARVEDILOL
  7. NIACIN [Concomitant]
     Active Substance: NIACIN
  8. EZETIMIBE [Concomitant]
     Active Substance: EZETIMIBE
  9. GEMFIBROZIL [Concomitant]
     Active Substance: GEMFIBROZIL
  10. LISINOPRIL [Concomitant]
     Active Substance: LISINOPRIL
  11. FUROSEMIDE [Concomitant]
     Active Substance: FUROSEMIDE

REACTIONS (1)
  - Malignant neoplasm progression [Unknown]
